FAERS Safety Report 18807216 (Version 1)
Quarter: 2021Q1

REPORT INFORMATION
  Report Type: Spontaneous
  Country: US (occurrence: US)
  Receive Date: 20210128
  Receipt Date: 20210128
  Transmission Date: 20210419
  Serious: No
  Sender: FDA-Public Use
  Company Number: US-SA-2021SA021950

PATIENT
  Age: 50 Year
  Sex: Female

DRUGS (2)
  1. DUPIXENT [Suspect]
     Active Substance: DUPILUMAB
     Indication: FIBROMYALGIA
     Dosage: UNK UNK, QOW
     Route: 065
  2. CHANTIX [Suspect]
     Active Substance: VARENICLINE TARTRATE
     Dosage: UNK
     Route: 065
     Dates: start: 20210101, end: 20210118

REACTIONS (3)
  - Back pain [Recovering/Resolving]
  - Insomnia [Unknown]
  - Dysstasia [Unknown]

NARRATIVE: CASE EVENT DATE: 202101
